FAERS Safety Report 25986401 (Version 1)
Quarter: 2025Q4

REPORT INFORMATION
  Report Type: Report from Study
  Country: US (occurrence: US)
  Receive Date: 20251031
  Receipt Date: 20251031
  Transmission Date: 20260118
  Serious: Yes (Other)
  Sender: ABBVIE
  Company Number: US-ABBVIE-6523701

PATIENT
  Age: 73 Year
  Sex: Female

DRUGS (1)
  1. VENCLEXTA [Suspect]
     Active Substance: VENETOCLAX
     Indication: Product used for unknown indication
     Route: 048
     Dates: start: 20250207

REACTIONS (9)
  - Skin cancer [Unknown]
  - Spinal disorder [Unknown]
  - Neurosis [Unknown]
  - Balance disorder [Unknown]
  - Pruritus [Unknown]
  - Fatigue [Unknown]
  - Hypersomnia [Unknown]
  - White blood cell count abnormal [Unknown]
  - Fractured coccyx [Unknown]

NARRATIVE: CASE EVENT DATE: 20250101
